FAERS Safety Report 9115601 (Version 1)
Quarter: 2013Q1

REPORT INFORMATION
  Report Type: Spontaneous
  Country: US (occurrence: None)
  Receive Date: 20130128
  Receipt Date: 20130128
  Transmission Date: 20140127
  Serious: Yes (Other)
  Sender: FDA-Public Use
  Company Number: JPI-P-029132

PATIENT
  Age: 31 Year
  Sex: Female
  Weight: 104.33 kg

DRUGS (9)
  1. XYREM (500 MILLIGRAM/MILLILITERS, SOLUTION) (SODIUM OXYBATE) [Suspect]
     Indication: CATAPLEXY
     Dosage: (2.25 GM,2 IN 1 D)
     Route: 048
     Dates: start: 20121230
  2. DICLOFENAC SODIUM [Concomitant]
  3. PANTORPRAZOLE SODIUM [Concomitant]
  4. MODAFINIL [Concomitant]
  5. METHYLPHENIDATE HYDROCHLORIDE [Concomitant]
  6. BUPROPION HYDROCHLORDIE [Concomitant]
  7. ESCITALOPRAM OXALATE [Concomitant]
  8. FLUTICASONE PROPIONATE [Concomitant]
  9. ACETAMINOPHEN; HYDROCODONE BITARTRATE [Concomitant]

REACTIONS (8)
  - Myocarditis [None]
  - Initial insomnia [None]
  - Muscle spasms [None]
  - Muscle tightness [None]
  - Muscular weakness [None]
  - Palpitations [None]
  - Insomnia [None]
  - Condition aggravated [None]
